FAERS Safety Report 9925332 (Version 2)
Quarter: 2014Q1

REPORT INFORMATION
  Report Type: Spontaneous
  Country: CA (occurrence: CA)
  Receive Date: 20140226
  Receipt Date: 20140307
  Transmission Date: 20141002
  Serious: Yes (Hospitalization)
  Sender: FDA-Public Use
  Company Number: CA-GLAXOSMITHKLINE-A1057905A

PATIENT
  Age: 57 Year
  Sex: Female
  Weight: 76 kg

DRUGS (4)
  1. BENLYSTA [Suspect]
     Indication: SYSTEMIC LUPUS ERYTHEMATOSUS
     Dosage: 750MG SEE DOSAGE TEXT
     Route: 042
     Dates: start: 20140123
  2. MYFORTIC [Concomitant]
  3. PREDNISONE [Concomitant]
  4. PLAQUENIL [Concomitant]

REACTIONS (5)
  - Headache [Recovered/Resolved]
  - Meningitis [Unknown]
  - Urinary tract infection [Unknown]
  - Infection [Unknown]
  - Drug ineffective [Unknown]
